FAERS Safety Report 9290902 (Version 1)
Quarter: 2013Q2

REPORT INFORMATION
  Report Type: Spontaneous
  Country: US (occurrence: US)
  Receive Date: 20130515
  Receipt Date: 20130515
  Transmission Date: 20140414
  Serious: No
  Sender: FDA-Public Use
  Company Number: US-BAYER-2013-060300

PATIENT
  Sex: Male

DRUGS (1)
  1. FINACEA [Suspect]
     Indication: ROSACEA
     Dosage: UNK
     Route: 061
     Dates: start: 20130415, end: 20130503

REACTIONS (3)
  - Adverse drug reaction [None]
  - Application site pain [None]
  - Application site pruritus [None]
